FAERS Safety Report 4574593-8 (Version None)
Quarter: 2005Q1

REPORT INFORMATION
  Report Type: 
  Country: None (occurrence: None)
  Receive Date: 20050208
  Receipt Date: 20040414
  Transmission Date: 20050727
  Serious: No
  Sender: FDA-Public Use
  Company Number: US-GLAXOSMITHKLINE-A0507180A

PATIENT
  Age: 53 Year
  Sex: Male

DRUGS (3)
  1. PAXIL [Suspect]
     Dosage: 10MG PER DAY
     Route: 048
     Dates: start: 20040301
  2. ZANTAC [Concomitant]
     Route: 065
  3. ALKA SELTZER [Concomitant]
     Route: 065

REACTIONS (6)
  - DEPRESSION [None]
  - DRUG INEFFECTIVE [None]
  - DYSPEPSIA [None]
  - INSOMNIA [None]
  - WEIGHT INCREASED [None]
  - YAWNING [None]
